FAERS Safety Report 9885960 (Version 1)
Quarter: 2014Q1

REPORT INFORMATION
  Report Type: Spontaneous
  Country: CL (occurrence: CL)
  Receive Date: 20140210
  Receipt Date: 20140210
  Transmission Date: 20141002
  Serious: Yes (Other)
  Sender: FDA-Public Use
  Company Number: CL-PFIZER INC-2014034329

PATIENT
  Age: 84 Year
  Sex: Female

DRUGS (9)
  1. LIPITOR [Suspect]
     Indication: BLOOD CHOLESTEROL INCREASED
     Dosage: 10 MG, 1X/DAY
     Route: 048
     Dates: start: 1999
  2. QUETIAPINE [Concomitant]
     Dosage: UNK
  3. CIPRAMIL [Concomitant]
     Dosage: UNK
  4. VITAMIN D [Concomitant]
     Dosage: UNK
  5. CALCIUM [Concomitant]
     Dosage: UNK
  6. LYRICA [Concomitant]
     Dosage: UNK
  7. RIZE [Concomitant]
     Dosage: UNK
  8. ASPIRINE [Concomitant]
     Dosage: UNK
  9. CENTRUM [Concomitant]
     Dosage: UNK

REACTIONS (4)
  - Fall [Unknown]
  - Fracture [Unknown]
  - Weight increased [Not Recovered/Not Resolved]
  - Alopecia [Not Recovered/Not Resolved]
